FAERS Safety Report 12153534 (Version 1)
Quarter: 2016Q1

REPORT INFORMATION
  Report Type: Spontaneous
  Country: NZ (occurrence: NZ)
  Receive Date: 20160306
  Receipt Date: 20160306
  Transmission Date: 20160526
  Serious: Yes (Life-Threatening)
  Sender: FDA-Public Use
  Company Number: NZ-009507513-1603NZL002223

PATIENT
  Age: 54 Year
  Sex: Male

DRUGS (1)
  1. SIMVASTATIN. [Suspect]
     Active Substance: SIMVASTATIN
     Indication: HYPERCHOLESTEROLAEMIA
     Dosage: 20 MG, QD
     Route: 048
     Dates: start: 20020501, end: 200206

REACTIONS (5)
  - Dysgeusia [Not Recovered/Not Resolved]
  - Vision blurred [Not Recovered/Not Resolved]
  - Rhabdomyolysis [Not Recovered/Not Resolved]
  - Acute kidney injury [Not Recovered/Not Resolved]
  - Somnolence [Not Recovered/Not Resolved]

NARRATIVE: CASE EVENT DATE: 20020623
